FAERS Safety Report 23115429 (Version 2)
Quarter: 2023Q4

REPORT INFORMATION
  Report Type: Spontaneous
  Country: US (occurrence: US)
  Receive Date: 20231027
  Receipt Date: 20231031
  Transmission Date: 20240110
  Serious: No
  Sender: FDA-Public Use
  Company Number: US-ABBVIE-5469661

PATIENT
  Sex: Female

DRUGS (4)
  1. SYNTHROID [Suspect]
     Active Substance: LEVOTHYROXINE SODIUM
     Indication: Product used for unknown indication
     Route: 048
  2. LEVOXYL [Suspect]
     Active Substance: LEVOTHYROXINE SODIUM
     Indication: Hypothyroidism
     Route: 048
  3. LEVOXYL [Suspect]
     Active Substance: LEVOTHYROXINE SODIUM
     Indication: Hypothyroidism
     Route: 048
  4. LEVOXYL [Suspect]
     Active Substance: LEVOTHYROXINE SODIUM
     Indication: Hypothyroidism
     Route: 048

REACTIONS (3)
  - Hair texture abnormal [Unknown]
  - Blood thyroid stimulating hormone abnormal [Unknown]
  - Onychoclasis [Unknown]
